FAERS Safety Report 8763632 (Version 2)
Quarter: 2012Q4

REPORT INFORMATION
  Report Type: 
  Country: BR (occurrence: BR)
  Receive Date: 20120830
  Receipt Date: 20121125
  Transmission Date: 20130627
  Serious: Yes (Hospitalization)
  Sender: FDA-Public Use
  Company Number: BR-AMGEN-BRASP2012054359

PATIENT
  Age: 56 Year
  Sex: Female

DRUGS (4)
  1. ENBREL [Suspect]
     Indication: RHEUMATOID ARTHRITIS
     Dosage: 50 mg, weekly
     Route: 058
     Dates: start: 201010, end: 201106
  2. PURAN T4 [Concomitant]
     Dosage: 88 mg
  3. IBUPROFEN [Concomitant]
     Dosage: 60 mg unk
  4. PREDNISONE [Concomitant]
     Dosage: 5 mg

REACTIONS (1)
  - Dengue fever [Recovered/Resolved]
